FAERS Safety Report 10500990 (Version 1)
Quarter: 2014Q4

REPORT INFORMATION
  Report Type: Spontaneous
  Country: AU (occurrence: None)
  Receive Date: 20141003
  Receipt Date: 20141003
  Transmission Date: 20150528
  Serious: No
  Sender: FDA-Public Use
  Company Number: None

PATIENT
  Age: 16 Year
  Sex: Female
  Weight: 49 kg

DRUGS (2)
  1. MAXOLON [Suspect]
     Active Substance: METOCLOPRAMIDE HYDROCHLORIDE
     Indication: ABDOMINAL PAIN UPPER
     Dosage: UNKNOWN -THROUGH A DRIP?ONE TIME ONLY?INTO A VEIN
     Route: 042
     Dates: start: 20110223
  2. MAXOLON [Suspect]
     Active Substance: METOCLOPRAMIDE HYDROCHLORIDE
     Dosage: UNKNOWN -THROUGH A DRIP?ONE TIME ONLY?INTO A VEIN
     Route: 042
     Dates: start: 20110223

REACTIONS (6)
  - Aggression [None]
  - Feeling abnormal [None]
  - Nervous system disorder [None]
  - Suicidal ideation [None]
  - Unevaluable event [None]
  - Screaming [None]

NARRATIVE: CASE EVENT DATE: 20110223
